FAERS Safety Report 13664734 (Version 2)
Quarter: 2017Q2

REPORT INFORMATION
  Report Type: Spontaneous
  Country: JP (occurrence: JP)
  Receive Date: 20170619
  Receipt Date: 20170622
  Transmission Date: 20170830
  Serious: Yes (Other)
  Sender: FDA-Public Use
  Company Number: JP-BAYER-2017-111642

PATIENT
  Sex: Female

DRUGS (6)
  1. PENTAZOCINE [Concomitant]
     Active Substance: PENTAZOCINE
     Dosage: UNK
     Route: 064
  2. PLASMA, FRESH FROZEN [Concomitant]
     Active Substance: HUMAN PLASMA
     Dosage: 8 DF, QD
     Route: 064
  3. ACETAMINOPHEN. [Concomitant]
     Active Substance: ACETAMINOPHEN
     Indication: PAIN
     Dosage: UNK
     Route: 064
  4. BAYASPIRIN 100 MG [Suspect]
     Active Substance: ASPIRIN
     Dosage: UNK
     Route: 064
  5. RED BLOOD CELLS, CONCENTRATED [Concomitant]
     Active Substance: HUMAN RED BLOOD CELL
     Dosage: 10 DF, UNK
     Route: 064
  6. ROPIVACAINE HYDROCHLORIDE. [Concomitant]
     Active Substance: ROPIVACAINE HYDROCHLORIDE
     Dosage: UNK
     Route: 064

REACTIONS (6)
  - Abdominal distension [None]
  - Meconium abnormal [None]
  - Foetal exposure during pregnancy [Recovered/Resolved]
  - Intestinal dilatation [None]
  - Premature baby [None]
  - Low birth weight baby [None]
